FAERS Safety Report 9567611 (Version 1)
Quarter: 2013Q3

REPORT INFORMATION
  Report Type: Spontaneous
  Country: US (occurrence: US)
  Receive Date: 20130930
  Receipt Date: 20130930
  Transmission Date: 20140515
  Serious: No
  Sender: FDA-Public Use
  Company Number: US-AMGEN-USASP2013004319

PATIENT
  Age: 70 Year
  Sex: Male
  Weight: 83.9 kg

DRUGS (8)
  1. ENBREL [Suspect]
     Indication: RHEUMATOID ARTHRITIS
     Dosage: 50 MG, QWK
     Route: 058
  2. METHOTREXATE [Concomitant]
     Dosage: 2.5 MG, UNK
  3. COUMADIN                           /00014802/ [Concomitant]
     Dosage: 1 MG, UNK
  4. ASPIRIN [Concomitant]
     Dosage: 81 MG, UNK
  5. VYTORIN [Concomitant]
     Dosage: 10-10 MG
  6. VITAMIN B12                        /00056201/ [Concomitant]
     Dosage: 500 MUG, UNK
  7. FOLIC ACID [Concomitant]
     Dosage: UNK
  8. VITAMIN D3 [Concomitant]
     Dosage: 10000 UNIT, UNK

REACTIONS (3)
  - Myalgia [Unknown]
  - Arthralgia [Unknown]
  - Sinusitis [Unknown]
